APPROVED DRUG PRODUCT: ALPRAZOLAM
Active Ingredient: ALPRAZOLAM
Strength: 2MG
Dosage Form/Route: TABLET;ORAL
Application: A074046 | Product #004
Applicant: PHARMOBEDIENT CONSULTING LLC
Approved: May 7, 1997 | RLD: No | RS: No | Type: DISCN